FAERS Safety Report 4343195-0 (Version None)
Quarter: 2004Q1

REPORT INFORMATION
  Report Type: 
  Country: None (occurrence: None)
  Receive Date: 20040325
  Receipt Date: 20040126
  Transmission Date: 20041129
  Serious: No
  Sender: FDA-Public Use
  Company Number: USA031254449

PATIENT
  Age: 58 Year
  Sex: Female

DRUGS (4)
  1. FORTEO [Suspect]
  2. ENBREL [Concomitant]
  3. TRACLEER [Concomitant]
  4. COUMADIN [Concomitant]

REACTIONS (1)
  - CALCINOSIS [None]
